FAERS Safety Report 10620421 (Version 1)
Quarter: 2014Q4

REPORT INFORMATION
  Report Type: Spontaneous
  Country: US (occurrence: US)
  Receive Date: 20141202
  Receipt Date: 20141202
  Transmission Date: 20150529
  Serious: No
  Sender: FDA-Public Use
  Company Number: US-ASTRAZENECA-2014SE85173

PATIENT
  Age: 977 Month
  Sex: Male
  Weight: 90.7 kg

DRUGS (7)
  1. SYMBICORT [Suspect]
     Active Substance: BUDESONIDE\FORMOTEROL FUMARATE DIHYDRATE
     Indication: CHRONIC OBSTRUCTIVE PULMONARY DISEASE
     Dosage: 160 UG 1 PUFF BID
     Route: 055
  2. LOVASTATIN. [Concomitant]
     Active Substance: LOVASTATIN
     Indication: BLOOD CHOLESTEROL ABNORMAL
     Route: 048
     Dates: start: 2004
  3. SYMBICORT [Suspect]
     Active Substance: BUDESONIDE\FORMOTEROL FUMARATE DIHYDRATE
     Indication: CHRONIC OBSTRUCTIVE PULMONARY DISEASE
     Dosage: 160  UG 1 PUFF BID
     Route: 055
     Dates: start: 201409, end: 201410
  4. LANTUS [Concomitant]
     Active Substance: INSULIN GLARGINE
     Indication: DIABETES MELLITUS
  5. SYMBICORT [Suspect]
     Active Substance: BUDESONIDE\FORMOTEROL FUMARATE DIHYDRATE
     Indication: CHRONIC OBSTRUCTIVE PULMONARY DISEASE
     Dosage: 320 UG 2 PUFF BID
     Route: 055
     Dates: start: 201410, end: 201410
  6. NOVALOG [Concomitant]
     Indication: DIABETES MELLITUS
  7. PEROZOSIN [Concomitant]
     Indication: PROSTATE CANCER
     Route: 048

REACTIONS (5)
  - Muscle spasms [Recovering/Resolving]
  - Dysphonia [Recovered/Resolved]
  - Intentional product misuse [Not Recovered/Not Resolved]
  - Hyperhidrosis [Recovered/Resolved]
  - Chest pain [Recovered/Resolved]

NARRATIVE: CASE EVENT DATE: 201409
